FAERS Safety Report 17213708 (Version 2)
Quarter: 2020Q1

REPORT INFORMATION
  Report Type: Spontaneous
  Country: US (occurrence: US)
  Receive Date: 20191230
  Receipt Date: 20200108
  Transmission Date: 20200409
  Serious: Yes (Other)
  Sender: FDA-Public Use
  Company Number: US-PFIZER INC-2019544585

PATIENT
  Age: 50 Year
  Sex: Female
  Weight: 78.5 kg

DRUGS (33)
  1. EFFEXOR [Concomitant]
     Active Substance: VENLAFAXINE HYDROCHLORIDE
     Indication: STRESS
  2. ALENDRONATE SODIUM. [Concomitant]
     Active Substance: ALENDRONATE SODIUM
     Indication: BONE DENSITY ABNORMAL
     Dosage: 35 MG, WEEKLY
     Dates: start: 201806
  3. VITAMIN D [COLECALCIFEROL] [Concomitant]
     Active Substance: CHOLECALCIFEROL
     Indication: BLOOD TEST ABNORMAL
     Dosage: UNK, WEEKLY
     Dates: start: 201705
  4. VITAMIN B12 [Concomitant]
     Active Substance: CYANOCOBALAMIN
     Indication: ASTHENIA
     Dosage: UNK, MONTHLY
     Dates: start: 201806, end: 201809
  5. B COMPLEX [VITAMIN B COMPLEX] [Concomitant]
     Indication: ASTHENIA
     Dosage: UNK
     Dates: start: 201802, end: 201809
  6. PREDNISONE. [Concomitant]
     Active Substance: PREDNISONE
     Dosage: 70 MG, UNK
     Dates: start: 201806
  7. EFFEXOR [Concomitant]
     Active Substance: VENLAFAXINE HYDROCHLORIDE
     Indication: DEPRESSION
     Dosage: 75 MG, 2X/DAY
     Dates: start: 201806
  8. CALCIUM [Concomitant]
     Active Substance: CALCIUM
     Indication: BLOOD TEST ABNORMAL
     Dosage: UNK
     Dates: start: 201802, end: 201809
  9. VITAMIN D [ERGOCALCIFEROL] [Concomitant]
     Active Substance: ERGOCALCIFEROL
     Dosage: 7.25 MG, WEEKLY
     Dates: start: 201802, end: 201808
  10. CIPRO [Concomitant]
     Active Substance: CIPROFLOXACIN HYDROCHLORIDE
     Dosage: 500 MG, UNK
     Dates: start: 201805, end: 201808
  11. HYDROCORTISONE. [Concomitant]
     Active Substance: HYDROCORTISONE
     Dosage: UNK
  12. CLONAZEPAM. [Concomitant]
     Active Substance: CLONAZEPAM
     Indication: ANXIETY
     Dosage: UNK
     Dates: start: 201801, end: 201808
  13. ZOFRAN [Concomitant]
     Active Substance: ONDANSETRON HYDROCHLORIDE
     Indication: NAUSEA
     Dosage: 4 MG, UNK
     Dates: start: 201805, end: 201808
  14. MOTRIN [Concomitant]
     Active Substance: IBUPROFEN
     Indication: PAIN
     Dosage: UNK
     Dates: start: 201802, end: 201808
  15. EFFEXOR [Concomitant]
     Active Substance: VENLAFAXINE HYDROCHLORIDE
     Indication: INJURY
  16. TYLENOL WITH CODEINE [Concomitant]
     Active Substance: ACETAMINOPHEN\CODEINE PHOSPHATE
     Indication: PAIN
     Dosage: UNK
     Dates: start: 201806, end: 201808
  17. KETOCONAZOLE. [Concomitant]
     Active Substance: KETOCONAZOLE
     Dosage: UNK
  18. NITROFURANTOIN MONOHYDRATE [Concomitant]
     Active Substance: NITROFURANTOIN MONOHYDRATE
     Dosage: 700 MG, UNK
     Dates: start: 201708
  19. TRIAMCINOLONE [Concomitant]
     Active Substance: TRIAMCINOLONE
     Dosage: UNK
  20. ZEASORB AF [MICONAZOLE NITRATE] [Concomitant]
     Dosage: UNK
  21. LYRICA [Suspect]
     Active Substance: PREGABALIN
     Indication: NEURALGIA
     Dosage: 75 MG, 3X/DAY
     Dates: start: 201804
  22. EFFEXOR [Concomitant]
     Active Substance: VENLAFAXINE HYDROCHLORIDE
     Indication: ANXIETY
  23. PREDNISONE. [Concomitant]
     Active Substance: PREDNISONE
     Indication: NEURITIS
     Dosage: 5 MG, UNK
     Dates: start: 201802, end: 201804
  24. NEXIUM I.V. [Concomitant]
     Active Substance: ESOMEPRAZOLE SODIUM
     Dosage: 20 MG, UNK
     Dates: start: 201804, end: 201806
  25. GABAPENTIN. [Concomitant]
     Active Substance: GABAPENTIN
     Indication: HOT FLUSH
     Dosage: UNK
     Dates: start: 201704, end: 201806
  26. LYRICA [Suspect]
     Active Substance: PREGABALIN
     Indication: FIBROMYALGIA
     Dosage: 50 MG, UNK
  27. MELATONIN [Concomitant]
     Active Substance: MELATONIN
     Indication: INSOMNIA
     Dosage: UNK (3 OR 5MG )
     Dates: start: 201702
  28. CLONAZEPAM. [Concomitant]
     Active Substance: CLONAZEPAM
     Indication: INSOMNIA
  29. GABAPENTIN. [Concomitant]
     Active Substance: GABAPENTIN
     Indication: PAIN
  30. ANUSOL-HC [HYDROCORTISONE ACETATE] [Concomitant]
     Indication: HAEMORRHOIDS
     Dosage: UNK
     Dates: start: 201704, end: 201808
  31. MICONAZOLE. [Concomitant]
     Active Substance: MICONAZOLE
     Dosage: UNK
  32. KETOCONAZOLE. [Concomitant]
     Active Substance: KETOCONAZOLE
     Dosage: UNK
  33. GENTAMICIN. [Concomitant]
     Active Substance: GENTAMICIN
     Dosage: UNK

REACTIONS (2)
  - Suicidal ideation [Unknown]
  - General physical health deterioration [Unknown]
